FAERS Safety Report 9586000 (Version 1)
Quarter: 2013Q4

REPORT INFORMATION
  Report Type: Spontaneous
  Country: US (occurrence: None)
  Receive Date: 20131002
  Receipt Date: 20131002
  Transmission Date: 20140711
  Serious: Yes (Hospitalization)
  Sender: FDA-Public Use
  Company Number: None

PATIENT
  Age: 52 Year
  Sex: Female

DRUGS (2)
  1. ERIBULIN MESYLATE [Suspect]
     Indication: CERVIX CARCINOMA
     Route: 042
     Dates: start: 20130909, end: 20130916
  2. METFORMIN HCL [Concomitant]

REACTIONS (5)
  - Dyspnoea [None]
  - Pyrexia [None]
  - Chills [None]
  - Septic shock [None]
  - Altered state of consciousness [None]
